FAERS Safety Report 4449446-6 (Version None)
Quarter: 2004Q3

REPORT INFORMATION
  Report Type: 
  Country: None (occurrence: None)
  Receive Date: 20040914
  Receipt Date: 20040901
  Transmission Date: 20050211
  Serious: Yes (Hospitalization)
  Sender: FDA-Public Use
  Company Number: PERI00204003056

PATIENT
  Age: 80 Year
  Sex: Female
  Weight: 65 kg

DRUGS (14)
  1. COVERSYL (PERINDOPRIL) [Suspect]
     Indication: ILL-DEFINED DISORDER
     Dosage: 4 MG QD PO
     Route: 048
  2. VIOXX [Suspect]
     Indication: ILL-DEFINED DISORDER
     Dosage: DAILY, PO
     Route: 048
     Dates: start: 20040611, end: 20040706
  3. DIGOXIN [Suspect]
     Indication: ILL-DEFINED DISORDER
     Dosage: 2 DF DAILY PO
     Route: 048
  4. DILTIAZEM HCL [Suspect]
     Indication: ATRIAL FIBRILLATION
     Dosage: 2 DF DAILY PO
     Route: 048
     Dates: end: 20040706
  5. PREVISCAN (FLUINDIONE) [Concomitant]
  6. LEVOTHYROXINE SODIUM [Concomitant]
  7. AMLOR (AMLODIPINE BESILATE) [Concomitant]
  8. LASIX [Concomitant]
  9. POTASSIUM CHLORIDE [Concomitant]
  10. ALLOPURINOL [Concomitant]
  11. RELVENE (RUTOSIDE) [Concomitant]
  12. ATORVASTATIN CALCIUM [Concomitant]
  13. EUPANTOL (PANTOPRAZOLE) [Concomitant]
  14. FIXICAL D3 (FIXICAL D3) [Concomitant]

REACTIONS (8)
  - BRADYCARDIA [None]
  - CARDIOACTIVE DRUG LEVEL INCREASED [None]
  - DRUG INTERACTION [None]
  - EMBOLISM [None]
  - LOSS OF CONSCIOUSNESS [None]
  - PALLOR [None]
  - PERIPHERAL ISCHAEMIA [None]
  - RENAL FAILURE [None]
